FAERS Safety Report 4901823-2 (Version None)
Quarter: 2006Q1

REPORT INFORMATION
  Report Type: 
  Country: None (occurrence: None)
  Receive Date: 20060203
  Receipt Date: 20060203
  Transmission Date: 20060701
  Serious: Yes (Other)
  Sender: FDA-Public Use
  Company Number: None

PATIENT
  Sex: Female
  Weight: 43.9989 kg

DRUGS (4)
  1. ABILIFY [Suspect]
     Indication: ANXIETY
     Dosage: 5 MG BID PO
     Route: 048
     Dates: start: 20060109, end: 20060126
  2. ABILIFY [Suspect]
     Indication: DELUSION
     Dosage: 5 MG BID PO
     Route: 048
     Dates: start: 20060109, end: 20060126
  3. ABILIFY [Suspect]
     Indication: OBSESSIVE-COMPULSIVE DISORDER
     Dosage: 5 MG BID PO
     Route: 048
     Dates: start: 20060109, end: 20060126
  4. ABILIFY [Suspect]
     Indication: THINKING ABNORMAL
     Dosage: 5 MG BID PO
     Route: 048
     Dates: start: 20060109, end: 20060126

REACTIONS (3)
  - ANXIETY [None]
  - MUSCLE TWITCHING [None]
  - TREMOR [None]
